FAERS Safety Report 5853108-8 (Version None)
Quarter: 2008Q3

REPORT INFORMATION
  Report Type: 
  Country: None (occurrence: None)
  Receive Date: 20080821
  Receipt Date: 20080820
  Transmission Date: 20090109
  Serious: Yes (Other)
  Sender: FDA-Public Use
  Company Number: US-RB-003472-08

PATIENT
  Sex: Female

DRUGS (6)
  1. SUBOXONE [Suspect]
     Indication: PAIN
     Route: 060
     Dates: start: 20080818
  2. SUBOXONE [Suspect]
     Route: 060
     Dates: start: 20080804, end: 20080804
  3. KLONOPIN [Concomitant]
     Indication: ANXIETY
     Route: 048
  4. IMITREX [Concomitant]
     Indication: MIGRAINE
     Route: 048
  5. ZOLOFT [Concomitant]
     Indication: POST-TRAUMATIC STRESS DISORDER
     Route: 048
  6. TRAZODONE HCL [Concomitant]
     Indication: DEPRESSION
     Route: 048

REACTIONS (4)
  - HALLUCINATION [None]
  - HEADACHE [None]
  - NAUSEA [None]
  - VOMITING [None]
